FAERS Safety Report 21748922 (Version 1)
Quarter: 2022Q4

REPORT INFORMATION
  Report Type: Spontaneous
  Country: US (occurrence: None)
  Receive Date: 20221216
  Receipt Date: 20221216
  Transmission Date: 20230113
  Serious: Yes (Hospitalization)
  Sender: FDA-Public Use
  Company Number: None

PATIENT
  Sex: Female

DRUGS (2)
  1. LOMUSTINE [Suspect]
     Active Substance: LOMUSTINE
     Indication: Brain neoplasm malignant
     Dosage: FREQUENCY : ONCE;?
     Route: 048
     Dates: start: 20221108
  2. TABLOID [Suspect]
     Active Substance: THIOGUANINE
     Indication: Brain neoplasm malignant
     Dosage: FREQUENCY : EVERY 8 HOURS;?
     Route: 048
     Dates: start: 20221108

REACTIONS (2)
  - Appendix disorder [None]
  - Nausea [None]
